FAERS Safety Report 24794883 (Version 2)
Quarter: 2025Q1

REPORT INFORMATION
  Report Type: Report from Study
  Country: NL (occurrence: NL)
  Receive Date: 20241231
  Receipt Date: 20250108
  Transmission Date: 20250408
  Serious: Yes (Death, Other)
  Sender: VERITY PHARMACEUTICALS INC.
  Company Number: NL-VER-202400086

PATIENT
  Age: 75 Year
  Sex: Male

DRUGS (3)
  1. TRIPTORELIN PAMOATE [Suspect]
     Active Substance: TRIPTORELIN PAMOATE
     Indication: Prostate cancer
     Dosage: 22.5 MG, 1.00 X PER 24 WEEKS
     Route: 030
     Dates: start: 20210609
  2. TRIPTORELIN PAMOATE [Suspect]
     Active Substance: TRIPTORELIN PAMOATE
     Indication: Prostate cancer
     Dosage: 22.5 MG, 1.00 X PER 24 WEEKS
     Route: 030
     Dates: start: 20240306
  3. TRIPTORELIN PAMOATE [Suspect]
     Active Substance: TRIPTORELIN PAMOATE
     Indication: Prostate cancer
     Dosage: 22.5 MG, 1.00 X PER 24 WEEKS
     Route: 030
     Dates: start: 20240906

REACTIONS (1)
  - Death [Fatal]

NARRATIVE: CASE EVENT DATE: 20241216
